FAERS Safety Report 10204309 (Version 1)
Quarter: 2014Q2

REPORT INFORMATION
  Report Type: Spontaneous
  Country: AU (occurrence: AU)
  Receive Date: 20140529
  Receipt Date: 20140529
  Transmission Date: 20141212
  Serious: Yes (Other)
  Sender: FDA-Public Use
  Company Number: AU-ASTRAZENECA-2014SE35700

PATIENT
  Age: 67 Year
  Sex: Male

DRUGS (14)
  1. CRESTOR [Suspect]
     Route: 048
     Dates: start: 20120719, end: 20121018
  2. ASTRIX [Concomitant]
  3. CARVEDILOL HYDROCHLORIDE [Concomitant]
  4. EZETROL [Concomitant]
  5. FOLIC ACID [Concomitant]
  6. LANTUS SOLOSTAR [Concomitant]
  7. LASIX [Concomitant]
  8. METHOTREXATE [Concomitant]
  9. NOVORAPID FLEXPEN [Concomitant]
  10. PANADOL OSTEO [Concomitant]
  11. PLAVIX [Concomitant]
  12. PREDNISOLONE [Concomitant]
     Dosage: 50 MG FOR TWO WEEKS (BUT WAS ON HIGH DOSE FOR APPROXIMATELY SIX WEEKS
  13. PREDNISONE [Concomitant]
  14. TRITACE [Concomitant]

REACTIONS (9)
  - Mobility decreased [Unknown]
  - Myocardial infarction [Unknown]
  - Blood creatine phosphokinase MB increased [Unknown]
  - Condition aggravated [Unknown]
  - Myopathy [Unknown]
  - Back pain [Unknown]
  - Gait disturbance [Unknown]
  - Asthenia [Unknown]
  - Therapy cessation [Unknown]
